FAERS Safety Report 14511897 (Version 1)
Quarter: 2018Q1

REPORT INFORMATION
  Report Type: Spontaneous
  Country: US (occurrence: US)
  Receive Date: 20180209
  Receipt Date: 20180209
  Transmission Date: 20180509
  Serious: Yes (Other)
  Sender: FDA-Public Use
  Company Number: US-JNJFOC-20180207116

PATIENT
  Sex: Female
  Weight: 52.16 kg

DRUGS (5)
  1. FENTANYL. [Suspect]
     Active Substance: FENTANYL
     Indication: PAIN
     Dosage: 15 YEARS AGO
     Route: 062
  2. FENTANYL. [Suspect]
     Active Substance: FENTANYL
     Indication: PAIN
     Route: 062
  3. FENTANYL. [Suspect]
     Active Substance: FENTANYL
     Indication: PAIN
     Route: 062
  4. FENTANYL. [Suspect]
     Active Substance: FENTANYL
     Indication: PAIN
     Route: 062
  5. FENTANYL. [Suspect]
     Active Substance: FENTANYL
     Indication: PAIN
     Dosage: FOR ABOUT 5 YEARS
     Route: 062

REACTIONS (4)
  - Adverse event [Recovered/Resolved]
  - Hip fracture [Not Recovered/Not Resolved]
  - Wrist fracture [Not Recovered/Not Resolved]
  - Medication error [Unknown]

NARRATIVE: CASE EVENT DATE: 2012
